FAERS Safety Report 10724562 (Version 1)
Quarter: 2015Q1

REPORT INFORMATION
  Report Type: Other
  Country: DE (occurrence: DE)
  Receive Date: 20150120
  Receipt Date: 20150120
  Transmission Date: 20150721
  Serious: Yes (Other)
  Sender: FDA-Public Use
  Company Number: DE-MYLANLABS-2015M1000719

PATIENT

DRUGS (4)
  1. L-THYROXIN [Concomitant]
     Active Substance: LEVOTHYROXINE SODIUM
     Indication: HYPOTHYROIDISM
     Dosage: 50 [?G/D ]
     Route: 048
     Dates: start: 20140307, end: 20141118
  2. BROMAZEPAM [Suspect]
     Active Substance: BROMAZEPAM
     Indication: POST-TRAUMATIC STRESS DISORDER
     Dosage: 6 MG, QD
     Route: 048
     Dates: start: 20140307, end: 20141118
  3. RITALIN [Suspect]
     Active Substance: METHYLPHENIDATE HYDROCHLORIDE
     Indication: NARCOLEPSY
     Dosage: 60 MG, QD
     Route: 048
     Dates: start: 20140307, end: 20141118
  4. CITALOPRAM [Suspect]
     Active Substance: CITALOPRAM HYDROBROMIDE
     Indication: POST-TRAUMATIC STRESS DISORDER
     Dosage: 60 MG, QD
     Route: 048
     Dates: start: 20140307, end: 20141118

REACTIONS (2)
  - Pre-eclampsia [Recovered/Resolved]
  - Exposure during pregnancy [Unknown]
